FAERS Safety Report 4943720-2 (Version None)
Quarter: 2006Q1

REPORT INFORMATION
  Report Type: 
  Country: None (occurrence: None)
  Receive Date: 20060310
  Receipt Date: 20060301
  Transmission Date: 20060701
  Serious: Yes (Death)
  Sender: FDA-Public Use
  Company Number: 2006027429

PATIENT
  Age: 70 Year
  Sex: Male
  Weight: 85 kg

DRUGS (5)
  1. FRAGMIN [Suspect]
     Indication: PROPHYLAXIS
     Dosage: SUBCUTANEOUS
     Route: 058
     Dates: start: 20060123, end: 20060215
  2. LIPITOR [Concomitant]
  3. EZETROL (EZETIMIBE) [Concomitant]
  4. DRUG, UNSPECIFIED [Concomitant]
  5. NORVASC [Concomitant]

REACTIONS (3)
  - OEDEMA PERIPHERAL [None]
  - PULMONARY EMBOLISM [None]
  - SUDDEN DEATH [None]
